FAERS Safety Report 10222977 (Version 2)
Quarter: 2014Q2

REPORT INFORMATION
  Report Type: Report from Study
  Country: AT (occurrence: AT)
  Receive Date: 20140607
  Receipt Date: 20140607
  Transmission Date: 20141212
  Serious: Yes (Other)
  Sender: FDA-Public Use
  Company Number: PHHY2013AT134651

PATIENT
  Sex: 0

DRUGS (2)
  1. GLIVEC [Suspect]
     Dosage: 400 MG, UNK
  2. GLIVEC [Suspect]
     Dosage: { 400MG

REACTIONS (7)
  - Performance status decreased [Unknown]
  - Periorbital oedema [Unknown]
  - Face oedema [Unknown]
  - Leukopenia [Unknown]
  - Listless [Unknown]
  - Eyelid oedema [Unknown]
  - Muscle spasms [Unknown]
